FAERS Safety Report 6752175-7 (Version None)
Quarter: 2010Q2

REPORT INFORMATION
  Report Type: 
  Country: None (occurrence: None)
  Receive Date: 20100602
  Receipt Date: 20100524
  Transmission Date: 20101027
  Serious: Yes (Other)
  Sender: FDA-Public Use
  Company Number: US-BAYER-201020868NA

PATIENT
  Age: 49 Year
  Sex: Female
  Weight: 64 kg

DRUGS (1)
  1. MAGNEVIST [Suspect]
     Indication: NUCLEAR MAGNETIC RESONANCE IMAGING BRAIN
     Dosage: TOTAL DAILY DOSE: 12 ML
     Route: 042
     Dates: start: 20100428, end: 20100428

REACTIONS (6)
  - DYSPHONIA [None]
  - HEART RATE DECREASED [None]
  - HYPERHIDROSIS [None]
  - SOMNOLENCE [None]
  - SYNCOPE [None]
  - UNRESPONSIVE TO STIMULI [None]
